FAERS Safety Report 7365146-7 (Version None)
Quarter: 2011Q1

REPORT INFORMATION
  Report Type: 
  Country: None (occurrence: None)
  Receive Date: 20110321
  Receipt Date: 20110316
  Transmission Date: 20110831
  Serious: Yes (Other)
  Sender: FDA-Public Use
  Company Number: US-ABBOTT-11P-163-0712345-00

PATIENT
  Sex: Male
  Weight: 93.07 kg

DRUGS (1)
  1. HUMIRA [Suspect]
     Indication: PSORIASIS
     Dates: start: 20020101, end: 20101201

REACTIONS (4)
  - LYMPHADENOPATHY [None]
  - HISTOPLASMOSIS [None]
  - NEOPLASM MALIGNANT [None]
  - EMOTIONAL DISTRESS [None]
